FAERS Safety Report 5068179-9 (Version None)
Quarter: 2006Q3

REPORT INFORMATION
  Report Type: 
  Country: None (occurrence: None)
  Receive Date: 20060731
  Receipt Date: 20060718
  Transmission Date: 20061208
  Serious: Yes (Other)
  Sender: FDA-Public Use
  Company Number: CHPA2006US07063

PATIENT
  Age: 59 Year
  Sex: Female
  Weight: 102 kg

DRUGS (5)
  1. NICOTINE [Suspect]
     Indication: SMOKING CESSATION THERAPY
     Dosage: 21 MG, QD, TRANSDERMAL
     Route: 062
     Dates: start: 20060626
  2. COLACE (DOCUSATE SODIUM) [Concomitant]
  3. SYNTHROID [Concomitant]
  4. ASPIRIN [Concomitant]
  5. VITAMINS (NO INGREDIENTS/SUBSTANCES) [Concomitant]

REACTIONS (2)
  - PAIN IN EXTREMITY [None]
  - SLEEP DISORDER [None]
